FAERS Safety Report 8113906-7 (Version None)
Quarter: 2012Q1

REPORT INFORMATION
  Report Type: 
  Country: None (occurrence: None)
  Receive Date: 20120203
  Receipt Date: 20120126
  Transmission Date: 20120608
  Serious: Yes (Hospitalization, Other)
  Sender: FDA-Public Use
  Company Number: US-ROCHE-1016514

PATIENT
  Sex: Female
  Weight: 43.13 kg

DRUGS (2)
  1. ACCUTANE [Suspect]
     Indication: ACNE CYSTIC
     Dates: start: 19941201, end: 19950301
  2. BIRTH CONTROL PILLS NOS [Concomitant]

REACTIONS (4)
  - SMALL INTESTINAL OBSTRUCTION [None]
  - DEPRESSION [None]
  - ANXIETY [None]
  - CROHN'S DISEASE [None]
